FAERS Safety Report 8164109-1 (Version None)
Quarter: 2012Q1

REPORT INFORMATION
  Report Type: 
  Country: None (occurrence: None)
  Receive Date: 20120224
  Receipt Date: 20120216
  Transmission Date: 20120608
  Serious: Yes (Hospitalization, Other)
  Sender: FDA-Public Use
  Company Number: US-BAXTER-2012BH002237

PATIENT
  Sex: Female

DRUGS (2)
  1. DIANEAL [Suspect]
     Route: 033
     Dates: start: 20120118, end: 20120123
  2. DIANEAL [Suspect]
     Indication: RENAL FAILURE CHRONIC
     Route: 033
     Dates: start: 20120118, end: 20120123

REACTIONS (7)
  - FLUID OVERLOAD [None]
  - DYSPNOEA [None]
  - VOMITING [None]
  - MULTIPLE MYELOMA [None]
  - COUGH [None]
  - NAUSEA [None]
  - PROCEDURAL PAIN [None]
